FAERS Safety Report 4682480-X (Version None)
Quarter: 2005Q2

REPORT INFORMATION
  Report Type: 
  Country: None (occurrence: None)
  Receive Date: 20050602
  Receipt Date: 20050412
  Transmission Date: 20051028
  Serious: No
  Sender: FDA-Public Use
  Company Number: USA050495492

PATIENT
  Sex: Female

DRUGS (5)
  1. CYMBALTA [Suspect]
     Indication: DEPRESSION
     Dosage: 120 MG DAY
     Dates: start: 20050101
  2. MAXZIDE [Concomitant]
  3. PROPRANOLOL [Concomitant]
  4. XANAX (ALPRAZOLAM DUM) [Concomitant]
  5. AMBIEN (ZOLIPIDEM TARTRATE) [Concomitant]

REACTIONS (1)
  - PRESCRIBED OVERDOSE [None]
